FAERS Safety Report 8268518-1 (Version None)
Quarter: 2012Q2

REPORT INFORMATION
  Report Type: 
  Country: None (occurrence: None)
  Receive Date: 20120409
  Receipt Date: 20120331
  Transmission Date: 20120825
  Serious: Yes (Hospitalization)
  Sender: FDA-Public Use
  Company Number: US-GLAXOSMITHKLINE-A0964618A

PATIENT
  Sex: Female

DRUGS (3)
  1. ADVAIR DISKUS 100/50 [Suspect]
     Indication: PRODUCT USED FOR UNKNOWN INDICATION
     Route: 055
  2. GAVISCON [Concomitant]
     Indication: GASTROINTESTINAL DISORDER
     Route: 048
  3. VENTOLIN [Suspect]
     Route: 055

REACTIONS (4)
  - DRUG INEFFECTIVE [None]
  - CONDITION AGGRAVATED [None]
  - ORAL CANDIDIASIS [None]
  - HOSPITALISATION [None]
